FAERS Safety Report 20333852 (Version 1)
Quarter: 2022Q1

REPORT INFORMATION
  Report Type: Spontaneous
  Country: FR (occurrence: FR)
  Receive Date: 20220113
  Receipt Date: 20220113
  Transmission Date: 20220423
  Serious: Yes (Hospitalization)
  Sender: FDA-Public Use
  Company Number: FR-TEVA-2021-FR-1979020

PATIENT
  Age: 10 Year
  Sex: Male
  Weight: 36.4 kg

DRUGS (8)
  1. METHOTREXATE (METHOTREXATE SODIUM) [Suspect]
     Active Substance: METHOTREXATE SODIUM
     Dosage: 5 G/50 ML
     Route: 041
     Dates: start: 20211012, end: 20211012
  2. METHOTREXATE (METHOTREXATE SODIUM) [Suspect]
     Active Substance: METHOTREXATE SODIUM
     Route: 037
     Dates: start: 20211013, end: 20211013
  3. HYDROXYZINE [Concomitant]
     Active Substance: HYDROXYZINE HYDROCHLORIDE
     Indication: Anxiety
     Dosage: 100 MG / 2 ML
     Route: 040
     Dates: start: 20211013, end: 20211013
  4. MERCAPTOPURINE [Concomitant]
     Active Substance: MERCAPTOPURINE
     Indication: Acute lymphocytic leukaemia
     Route: 048
     Dates: start: 20211008, end: 20211015
  5. NALBUPHINE [Concomitant]
     Active Substance: NALBUPHINE
     Indication: Pain
     Dosage: NALBUPHINE RENAUDIN 20 MG / 2 ML
     Route: 040
     Dates: start: 20211013, end: 20211013
  6. ALIZAPRIDE HYDROCHLORIDE [Concomitant]
     Active Substance: ALIZAPRIDE HYDROCHLORIDE
     Indication: Prophylaxis of nausea and vomiting
     Route: 042
     Dates: start: 20211012, end: 20211017
  7. LEUCOVORIN CALCIUM [Concomitant]
     Active Substance: LEUCOVORIN CALCIUM
     Indication: Blood disorder prophylaxis
     Dosage: ZENTIVA CALCIUM FOLINATE 5 MG / 2 ML, SOLUTION FOR INJECTION (IM, IV) IN AMPOULE
     Route: 042
     Dates: start: 20211014
  8. ONDANSETRON [Concomitant]
     Active Substance: ONDANSETRON
     Indication: Prophylaxis of nausea and vomiting
     Dosage: ONDANSETRON RENAUDIN (I.V.),
     Route: 040
     Dates: start: 20211012, end: 20211014

REACTIONS (2)
  - Drug clearance decreased [Recovered/Resolved]
  - Incorrect route of product administration [Unknown]

NARRATIVE: CASE EVENT DATE: 20211014
